FAERS Safety Report 10517593 (Version 1)
Quarter: 2014Q4

REPORT INFORMATION
  Report Type: Spontaneous
  Country: FR (occurrence: FR)
  Receive Date: 20141014
  Receipt Date: 20141014
  Transmission Date: 20150528
  Serious: Yes (Hospitalization)
  Sender: FDA-Public Use
  Company Number: FR-B.I. PHARMACEUTICALS,INC./RIDGEFIELD-2014-BI-48284FF

PATIENT
  Sex: Male

DRUGS (1)
  1. APTIVUS [Suspect]
     Active Substance: TIPRANAVIR
     Indication: HIV INFECTION
     Route: 065

REACTIONS (1)
  - Pharyngeal neoplasm [Not Recovered/Not Resolved]
